FAERS Safety Report 8814200 (Version 1)
Quarter: 2012Q4

REPORT INFORMATION
  Report Type: 
  Country: US (occurrence: US)
  Receive Date: 20120928
  Receipt Date: 20120928
  Transmission Date: 20130627
  Serious: Yes (Hospitalization)
  Sender: FDA-Public Use
  Company Number: US-BAYER-2012-099111

PATIENT
  Age: 42 Year
  Sex: Female

DRUGS (4)
  1. OCELLA [Suspect]
  2. YASMIN [Suspect]
  3. ARIXTRA [Concomitant]
     Dosage: 7.5 mg SC q24hour
  4. OMEPRAZOLE [Concomitant]
     Dosage: 20 mg, daily

REACTIONS (2)
  - Pulmonary embolism [None]
  - Deep vein thrombosis [Recovered/Resolved]
